FAERS Safety Report 6195120-8 (Version None)
Quarter: 2009Q2

REPORT INFORMATION
  Report Type: 
  Country: None (occurrence: None)
  Receive Date: 20090519
  Receipt Date: 20090504
  Transmission Date: 20091009
  Serious: Yes (Hospitalization, Other)
  Sender: FDA-Public Use
  Company Number: FR-ROCHE-631506

PATIENT
  Age: 45 Year
  Sex: Male

DRUGS (5)
  1. PEG-INTERFERON A-2A (RO 25-8310) [Suspect]
     Route: 065
     Dates: start: 20030101
  2. RIBAVIRIN [Suspect]
     Route: 065
     Dates: start: 20030101
  3. CYCLOSPORINE [Suspect]
     Route: 065
  4. CERTICAN [Suspect]
     Route: 065
  5. FUMAGILLIN [Suspect]
     Indication: MICROSPORIDIA INFECTION
     Route: 065

REACTIONS (5)
  - BLOOD CREATININE INCREASED [None]
  - COLITIS [None]
  - MICROSPORIDIA INFECTION [None]
  - PANCYTOPENIA [None]
  - THROMBOCYTOPENIA [None]
